FAERS Safety Report 23403892 (Version 1)
Quarter: 2024Q1

REPORT INFORMATION
  Report Type: Spontaneous
  Country: BG (occurrence: BG)
  Receive Date: 20240116
  Receipt Date: 20240116
  Transmission Date: 20240410
  Serious: Yes (Hospitalization)
  Sender: FDA-Public Use
  Company Number: BG-TEVA-VS-3143336

PATIENT
  Age: 86 Year

DRUGS (8)
  1. BISOPROLOL [Suspect]
     Active Substance: BISOPROLOL\BISOPROLOL FUMARATE
     Indication: Hypertension
     Dosage: RECEIVING TWO TIMES HALF A TABLET SINCE 10 YEARS
     Route: 065
  2. OLANZAPINE [Suspect]
     Active Substance: OLANZAPINE
     Indication: Depression
     Dosage: RECEIVING HALF A TABLET DAILY SINCE 6 YEARS
     Route: 065
  3. QUETIAPINE [Concomitant]
     Active Substance: QUETIAPINE
     Indication: Depression
     Dosage: RECEIVING IN THE EVENING ONE TO 2 TABLETS EVERY 2 DAYS FROM 5-6YEARS
     Route: 065
  4. ESOMEPRAZOLE [Concomitant]
     Active Substance: ESOMEPRAZOLE
     Indication: Gastritis
     Dosage: RECEIVING HALF A TABLET FROM 2 YEARS
     Route: 065
  5. DIGOXIN [Concomitant]
     Active Substance: DIGOXIN
     Indication: Cardiac failure congestive
     Dosage: RECEIVING HALF A TABLET
     Route: 065
  6. BROMAZEPAM [Concomitant]
     Active Substance: BROMAZEPAM
     Indication: Insomnia
     Dosage: RECEIVING IN THE EVENING ONE OR HALF A TABLET, EVERY 2 DAYS FROM 30 YEARS
     Route: 065
  7. VENLAFAXINE [Suspect]
     Active Substance: VENLAFAXINE HYDROCHLORIDE
     Indication: Depression
     Dosage: RECEIVING SINCE 6 YEARS
     Route: 065
  8. APIXABAN [Concomitant]
     Active Substance: APIXABAN
     Indication: Atrial fibrillation
     Dosage: RECEIVING 2 TIMES HALF A TABLET FROM 2/3 YEARS
     Route: 065

REACTIONS (1)
  - Basal cell carcinoma [Recovered/Resolved]
